FAERS Safety Report 9037011 (Version 1)
Quarter: 2013Q1

REPORT INFORMATION
  Report Type: Spontaneous
  Country: FR (occurrence: None)
  Receive Date: 20130115
  Receipt Date: 20130115
  Transmission Date: 20140127
  Serious: Yes (Hospitalization)
  Sender: FDA-Public Use
  Company Number: DKLU1087845

PATIENT
  Age: 3 Year
  Sex: Male

DRUGS (3)
  1. ONFI [Suspect]
     Route: 048
     Dates: start: 20121023, end: 20121028
  2. MICROPAKINE [Suspect]
     Route: 048
     Dates: start: 20120828, end: 20121028
  3. RIVOTRIL (CLONAZEPAM) [Suspect]
     Route: 048
     Dates: start: 20121023, end: 20121023

REACTIONS (1)
  - Cerebellar syndrome [None]
